FAERS Safety Report 16133607 (Version 1)
Quarter: 2019Q1

REPORT INFORMATION
  Report Type: Spontaneous
  Country: IT (occurrence: IT)
  Receive Date: 20190329
  Receipt Date: 20190329
  Transmission Date: 20190418
  Serious: Yes (Hospitalization)
  Sender: FDA-Public Use
  Company Number: IT-ACCORD-116326

PATIENT
  Age: 69 Year
  Sex: Male
  Weight: 86 kg

DRUGS (12)
  1. TORVAST [Concomitant]
     Active Substance: ATORVASTATIN
     Indication: HYPERCHOLESTEROLAEMIA
     Dosage: STRENGTH 20 MG FILM-COATED TABLETS
     Route: 048
     Dates: start: 20181116, end: 20181227
  2. GLICLAZIDE MYLAN [Concomitant]
     Active Substance: GLICLAZIDE
     Indication: TYPE 2 DIABETES MELLITUS
     Dosage: STRENGTH 80 MG
     Route: 048
     Dates: start: 20181116, end: 20181227
  3. ADENURIC [Concomitant]
     Active Substance: FEBUXOSTAT
     Indication: HYPERURICAEMIA
     Dosage: STRENGTH 80 MG FILM-COATED TABLETS
     Route: 048
     Dates: start: 20181116, end: 20181227
  4. REUMAFLEX [METHOTREXATE SODIUM] [Concomitant]
     Active Substance: METHOTREXATE SODIUM
     Indication: RHEUMATOID ARTHRITIS
     Route: 042
     Dates: start: 20181204, end: 20181227
  5. ACETYLSALICYLIC ACID NOVASOREL [Concomitant]
     Indication: INFARCTION
     Route: 048
     Dates: start: 20181116, end: 20181227
  6. REPAGLINIDE. [Concomitant]
     Active Substance: REPAGLINIDE
     Indication: TYPE 2 DIABETES MELLITUS
     Dosage: STRENGTH 1 MG
     Route: 048
     Dates: start: 20181116, end: 20181227
  7. DELTACORTENE [Suspect]
     Active Substance: PREDNISONE
     Indication: ASTHMA
     Dosage: STRENGTH 5 MG
     Route: 048
     Dates: start: 20181016, end: 20181227
  8. INDERAL [Concomitant]
     Active Substance: PROPRANOLOL HYDROCHLORIDE
     Indication: HYPOTENSION
     Route: 048
     Dates: start: 20181116, end: 20181227
  9. FUROSEMIDE. [Suspect]
     Active Substance: FUROSEMIDE
     Indication: OEDEMA
     Route: 048
     Dates: start: 20181116, end: 20181227
  10. DELORAZEPAM ALMUS [Concomitant]
     Active Substance: DELORAZEPAM
     Indication: ANXIETY
     Dosage: STRENGTH 1 MG / ML
     Route: 048
     Dates: start: 20181121, end: 20181227
  11. PANTOPRAZOLE DOC [Concomitant]
     Indication: GASTROOESOPHAGEAL REFLUX DISEASE
     Dosage: STRENGTH 20 MG GASTRO-RESISTANT TABLETS
     Route: 048
     Dates: start: 20181116, end: 20181227
  12. AMIODARONE MYLAN [Concomitant]
     Active Substance: AMIODARONE
     Indication: SUPRAVENTRICULAR TACHYCARDIA
     Route: 048
     Dates: start: 20181116, end: 20181227

REACTIONS (1)
  - Fall [Unknown]

NARRATIVE: CASE EVENT DATE: 20181208
